FAERS Safety Report 11966810 (Version 1)
Quarter: 2016Q1

REPORT INFORMATION
  Report Type: Spontaneous
  Country: US (occurrence: US)
  Receive Date: 20160127
  Receipt Date: 20160127
  Transmission Date: 20160526
  Serious: Yes (Hospitalization, Other)
  Sender: FDA-Public Use
  Company Number: US-BRISTOL-MYERS SQUIBB COMPANY-BMS-2016-003273

PATIENT
  Sex: Female
  Weight: 80 kg

DRUGS (5)
  1. CHLORHEXIDINE [Suspect]
     Active Substance: CHLORHEXIDINE
     Indication: PRODUCT USED FOR UNKNOWN INDICATION
     Route: 065
  2. REMODULIN [Suspect]
     Active Substance: TREPROSTINIL
     Indication: PULMONARY ARTERIAL HYPERTENSION
     Dosage: 0.11 ?G, UNK
     Route: 042
     Dates: start: 20151005
  3. REVATIO [Concomitant]
     Active Substance: SILDENAFIL CITRATE
     Indication: PRODUCT USED FOR UNKNOWN INDICATION
     Route: 065
  4. COUMADIN [Suspect]
     Active Substance: WARFARIN SODIUM
     Indication: PRODUCT USED FOR UNKNOWN INDICATION
     Route: 065
  5. TRACLEER [Suspect]
     Active Substance: BOSENTAN
     Indication: PRODUCT USED FOR UNKNOWN INDICATION
     Dosage: UNK
     Route: 065
     Dates: start: 20151105

REACTIONS (15)
  - Diarrhoea [Not Recovered/Not Resolved]
  - Vomiting [Recovered/Resolved]
  - Injection site discharge [Unknown]
  - Device related infection [Unknown]
  - Epistaxis [Unknown]
  - Injection site warmth [Unknown]
  - Oedema peripheral [Unknown]
  - Injection site erythema [Unknown]
  - Injection site vesicles [Unknown]
  - Injection site rash [Unknown]
  - Dermatitis contact [Unknown]
  - Headache [Unknown]
  - Nausea [Recovered/Resolved]
  - Injection site pustule [Recovered/Resolved]
  - Injection site pain [Unknown]
